FAERS Safety Report 7908863-X (Version None)
Quarter: 2011Q4

REPORT INFORMATION
  Report Type: 
  Country: None (occurrence: None)
  Receive Date: 20111111
  Receipt Date: 20111104
  Transmission Date: 20120403
  Serious: Yes (Other)
  Sender: FDA-Public Use
  Company Number: FR-SANOFI-AVENTIS-2011SA073043

PATIENT
  Age: 50 Year
  Sex: Female

DRUGS (9)
  1. SULFASALAZINE [Suspect]
     Route: 065
  2. PREDNISONE TAB [Concomitant]
     Route: 048
  3. METHOTREXATE [Concomitant]
     Indication: IMMUNOSUPPRESSANT DRUG THERAPY
     Route: 030
  4. PREDNISONE TAB [Concomitant]
     Route: 048
  5. MYCOPHENOLATE MOFETIL [Concomitant]
  6. PREDNISONE TAB [Concomitant]
     Indication: IMMUNOSUPPRESSANT DRUG THERAPY
     Route: 048
  7. HYDROXYCHLOROQUINE SULFATE [Suspect]
     Route: 065
  8. HYDROCORTISONE [Concomitant]
     Indication: ADRENAL INSUFFICIENCY
  9. HYDROCORTISONE [Concomitant]
     Indication: ASTHENIA

REACTIONS (4)
  - EYE DISORDER [None]
  - DRUG RASH WITH EOSINOPHILIA AND SYSTEMIC SYMPTOMS [None]
  - CENTRAL NERVOUS SYSTEM INFLAMMATION [None]
  - ADRENAL INSUFFICIENCY [None]
